FAERS Safety Report 9297648 (Version 1)
Quarter: 2013Q2

REPORT INFORMATION
  Report Type: Spontaneous
  Country: US (occurrence: None)
  Receive Date: 20130517
  Receipt Date: 20130517
  Transmission Date: 20140414
  Serious: Yes (Other)
  Sender: FDA-Public Use
  Company Number: None

PATIENT
  Age: 33 Year
  Sex: Female
  Weight: 61.24 kg

DRUGS (1)
  1. CLARITIN CHEWABLE TABLETS [Suspect]
     Indication: SEASONAL ALLERGY
     Dates: start: 20130515, end: 20130516

REACTIONS (7)
  - Nervousness [None]
  - Feeling jittery [None]
  - Dizziness [None]
  - Headache [None]
  - Drug ineffective [None]
  - Palpitations [None]
  - Distractibility [None]
